FAERS Safety Report 4869698-8 (Version None)
Quarter: 2005Q4

REPORT INFORMATION
  Report Type: 
  Country: None (occurrence: None)
  Receive Date: 20051227
  Receipt Date: 20051220
  Transmission Date: 20060501
  Serious: Yes (Hospitalization, Other)
  Sender: FDA-Public Use
  Company Number: FRWYE254421DEC05

PATIENT
  Age: 33 Year
  Sex: Female

DRUGS (1)
  1. STEDIRIL (NORGESTREL/ETHINYL ESTRADIOL, TABLET, 0) [Suspect]
     Indication: CONTRACEPTION
     Dosage: 1 TABLET 1X PER 1 DAY, ORAL
     Route: 048
     Dates: end: 20051014

REACTIONS (3)
  - ERYTHEMA NODOSUM [None]
  - PHARYNGOLARYNGEAL PAIN [None]
  - RHINITIS ALLERGIC [None]
